FAERS Safety Report 9103486 (Version 1)
Quarter: 2013Q1

REPORT INFORMATION
  Report Type: Report from Study
  Country: US (occurrence: US)
  Receive Date: 20130219
  Receipt Date: 20130219
  Transmission Date: 20140127
  Serious: Yes (Hospitalization)
  Sender: FDA-Public Use
  Company Number: US-SANOFI-AVENTIS-2013SA012319

PATIENT
  Age: 37 Year
  Sex: Female
  Weight: 84 kg

DRUGS (11)
  1. DOCETAXEL [Suspect]
     Indication: BREAST CANCER
     Dosage: DOSE LEVEL: 60 MG/M2, FORM: VIALS
     Route: 042
     Dates: start: 20100818
  2. BEVACIZUMAB [Suspect]
     Indication: BREAST CANCER
     Dosage: FORM: VIALS?DOSE LEVEL: 15 MG/KG
     Route: 042
     Dates: start: 20100818
  3. TRASTUZUMAB [Suspect]
     Indication: BREAST CANCER
     Dosage: DOSE LEVEL: 6 MG/KG?FORM: VIALS
     Route: 042
     Dates: start: 20100818
  4. CARBOPLATIN [Suspect]
     Indication: BREAST CANCER
     Dosage: FORM: VIALS?DOSE LEVEL: 5 AUC
     Route: 042
     Dates: start: 20100818
  5. ESOMEPRAZOLE MAGNESIUM [Concomitant]
     Dates: start: 2008
  6. LORATADINE [Concomitant]
     Dates: start: 2006
  7. LORAZEPAM [Concomitant]
     Dosage: EVERY 4 HOURS
     Dates: start: 20100818
  8. ZOFRAN [Concomitant]
     Dates: start: 20100818
  9. DEXAMETHASONE [Concomitant]
     Dosage: DAY PRIOR TO AND ON CHEMOTHERAPY DAY 2
     Dates: start: 20100818
  10. PERCOCET [Concomitant]
     Dosage: EVERY 4 HOURS
     Dates: start: 20100623
  11. QUININE [Concomitant]
     Dates: start: 20100819

REACTIONS (2)
  - Hypokalaemia [Recovered/Resolved]
  - Neutropenic infection [Recovered/Resolved]
